FAERS Safety Report 16490158 (Version 1)
Quarter: 2019Q3

REPORT INFORMATION
  Report Type: Spontaneous
  Country: US (occurrence: US)
  Receive Date: 20190627
  Receipt Date: 20190627
  Transmission Date: 20191004
  Serious: Yes (Hospitalization)
  Sender: FDA-Public Use
  Company Number: None

PATIENT
  Sex: Female

DRUGS (5)
  1. CAPECITABINE. [Suspect]
     Active Substance: CAPECITABINE
     Indication: BREAST CANCER FEMALE
     Dosage: ?          OTHER FREQUENCY:BID FOR 14/21 DAYS;?
     Route: 048
     Dates: start: 20170913
  2. ANASTROZOLE. [Concomitant]
     Active Substance: ANASTROZOLE
  3. VITAMIN D3 [Concomitant]
     Active Substance: CHOLECALCIFEROL
  4. CELECOXIB. [Concomitant]
     Active Substance: CELECOXIB
  5. LOMOTIL [Concomitant]
     Active Substance: ATROPINE SULFATE\DIPHENOXYLATE HYDROCHLORIDE

REACTIONS (2)
  - Therapy cessation [None]
  - Surgery [None]
